FAERS Safety Report 24393424 (Version 1)
Quarter: 2024Q4

REPORT INFORMATION
  Report Type: Spontaneous
  Country: US (occurrence: US)
  Receive Date: 20241003
  Receipt Date: 20241003
  Transmission Date: 20250115
  Serious: No
  Sender: HARMONY BIOSCIENCES
  Company Number: US-HARMONY BIOSCIENCES-2024HMY01239

PATIENT

DRUGS (10)
  1. WAKIX [Suspect]
     Active Substance: PITOLISANT HYDROCHLORIDE
     Indication: Narcolepsy
     Dosage: 8.9 MG, 1X/DAY
     Route: 048
     Dates: start: 202405, end: 2024
  2. WAKIX [Suspect]
     Active Substance: PITOLISANT HYDROCHLORIDE
     Indication: Narcolepsy
     Dosage: 17.8 MG, 1X/DAY
     Route: 048
     Dates: start: 2024, end: 2024
  3. WAKIX [Suspect]
     Active Substance: PITOLISANT HYDROCHLORIDE
     Dosage: 35.6 MG, 1X/DAY
     Route: 048
     Dates: start: 2024, end: 2024
  4. ATORVASTATIN [Concomitant]
     Active Substance: ATORVASTATIN
  5. PIOGLITAZONE [Concomitant]
     Active Substance: PIOGLITAZONE
  6. OMEPRAZOLE [Concomitant]
     Active Substance: OMEPRAZOLE
  7. VASCEPA [Concomitant]
     Active Substance: ICOSAPENT ETHYL
  8. EZETIMIBE [Concomitant]
     Active Substance: EZETIMIBE
  9. METOPROLOL [Concomitant]
     Active Substance: METOPROLOL
  10. LOSARTAN [Concomitant]
     Active Substance: LOSARTAN

REACTIONS (1)
  - Chest pain [Recovering/Resolving]

NARRATIVE: CASE EVENT DATE: 20240101
